FAERS Safety Report 5425160-5 (Version None)
Quarter: 2007Q3

REPORT INFORMATION
  Report Type: 
  Country: None (occurrence: None)
  Receive Date: 20070824
  Receipt Date: 20070813
  Transmission Date: 20080115
  Serious: Yes (Other)
  Sender: FDA-Public Use
  Company Number: US-ROCHE-511524

PATIENT
  Age: 72 Year
  Sex: Female

DRUGS (9)
  1. BONIVA [Suspect]
     Indication: OSTEOPOROSIS
     Route: 065
     Dates: start: 20070609
  2. IRON [Concomitant]
  3. HYZAAR [Concomitant]
  4. CARDIZEM [Concomitant]
  5. CALCIUM NOS [Concomitant]
  6. VITAMINE D [Concomitant]
     Dosage: REPORTED AS 'VITAMIN D'
  7. MULTIVITAMIN NOS [Concomitant]
  8. XANAX [Concomitant]
  9. OXYCODONE HCL [Concomitant]

REACTIONS (2)
  - BACK PAIN [None]
  - COLONIC POLYP [None]
